FAERS Safety Report 17164633 (Version 1)
Quarter: 2019Q4

REPORT INFORMATION
  Report Type: Spontaneous
  Country: FR (occurrence: FR)
  Receive Date: 20191217
  Receipt Date: 20191217
  Transmission Date: 20200122
  Serious: Yes (Other)
  Sender: FDA-Public Use
  Company Number: FR-MYLANLABS-2019M1123175

PATIENT
  Age: 8 Year
  Sex: Female

DRUGS (1)
  1. VENLAFAXINE [Suspect]
     Active Substance: VENLAFAXINE HYDROCHLORIDE
     Indication: MAJOR DEPRESSION
     Dosage: UNK
     Route: 064
     Dates: start: 20100414, end: 20101215

REACTIONS (2)
  - Foetal exposure during pregnancy [Recovered/Resolved]
  - Intellectual disability [Not Recovered/Not Resolved]

NARRATIVE: CASE EVENT DATE: 20190717
